FAERS Safety Report 12277861 (Version 3)
Quarter: 2016Q2

REPORT INFORMATION
  Report Type: Spontaneous
  Country: TR (occurrence: TR)
  Receive Date: 20160418
  Receipt Date: 20160506
  Transmission Date: 20160815
  Serious: Yes (Life-Threatening, Other)
  Sender: FDA-Public Use
  Company Number: TR-PFIZER INC-2016212287

PATIENT
  Age: 80 Year
  Sex: Male
  Weight: 75 kg

DRUGS (7)
  1. SINEMET [Concomitant]
     Active Substance: CARBIDOPA\LEVODOPA
  2. EBIXA [Concomitant]
     Active Substance: MEMANTINE HYDROCHLORIDE
     Dosage: STRENGTH 100 MG
  3. MICARDIS [Concomitant]
     Active Substance: TELMISARTAN
     Dosage: STRENGTH 80 MG
  4. MIRAPEX [Concomitant]
     Active Substance: PRAMIPEXOLE DIHYDROCHLORIDE
     Dosage: STRENGTH 1.5 MG
  5. NEURONTIN [Suspect]
     Active Substance: GABAPENTIN
     Dosage: 100 MG, UNK
  6. TRILEPTAL [Concomitant]
     Active Substance: OXCARBAZEPINE
     Dosage: STRENGTH 300 MG
  7. AZILECT [Concomitant]
     Active Substance: RASAGILINE MESYLATE

REACTIONS (7)
  - Swelling face [Recovered/Resolved]
  - Muscle spasms [Recovered/Resolved]
  - Eye swelling [Recovered/Resolved]
  - Pneumonitis [Recovered/Resolved]
  - Amnesia [Recovered/Resolved]
  - Erythema [Recovered/Resolved]
  - Vertigo [Recovered/Resolved]

NARRATIVE: CASE EVENT DATE: 20160316
